FAERS Safety Report 7194429-9 (Version None)
Quarter: 2010Q4

REPORT INFORMATION
  Report Type: 
  Country: None (occurrence: None)
  Receive Date: 20101223
  Receipt Date: 20101216
  Transmission Date: 20110411
  Serious: Yes (Hospitalization)
  Sender: FDA-Public Use
  Company Number: FR-ASTRAZENECA-2010SE59859

PATIENT
  Age: 32649 Day
  Sex: Female

DRUGS (10)
  1. SEROQUEL [Suspect]
     Route: 048
     Dates: end: 20101113
  2. DEROXAT [Suspect]
     Route: 048
     Dates: start: 20100101, end: 20101114
  3. STRATTERA [Suspect]
     Route: 048
     Dates: end: 20101114
  4. STRATTERA [Suspect]
     Route: 048
     Dates: start: 20101120, end: 20101122
  5. STRATTERA [Suspect]
     Route: 048
     Dates: end: 20101123
  6. ARICEPT [Suspect]
     Route: 048
     Dates: end: 20101117
  7. ASPEGIC 1000 [Concomitant]
  8. TOCO [Concomitant]
  9. CHONDROSULF [Concomitant]
  10. MULTIVITAMINE [Concomitant]

REACTIONS (2)
  - ALTERED STATE OF CONSCIOUSNESS [None]
  - HYPONATRAEMIA [None]
